FAERS Safety Report 5989387-6 (Version None)
Quarter: 2008Q4

REPORT INFORMATION
  Report Type: 
  Country: None (occurrence: None)
  Receive Date: 20081210
  Receipt Date: 20081201
  Transmission Date: 20090506
  Serious: Yes (Death, Other)
  Sender: FDA-Public Use
  Company Number: AT-ABBOTT-06P-009-0352787-00

PATIENT
  Sex: Female

DRUGS (3)
  1. RITONAVIR SOFT GELATIN CAPSULES [Suspect]
     Indication: ACQUIRED IMMUNODEFICIENCY SYNDROME
     Route: 048
     Dates: start: 20060217, end: 20060601
  2. APTIVUS [Suspect]
     Indication: ACQUIRED IMMUNODEFICIENCY SYNDROME
     Route: 048
     Dates: start: 20060217, end: 20060601
  3. TRUVADA [Concomitant]
     Indication: ACQUIRED IMMUNODEFICIENCY SYNDROME
     Dosage: 1F-TAB ENTH.
     Route: 048
     Dates: start: 20060217, end: 20060725

REACTIONS (4)
  - COMA HEPATIC [None]
  - HEPATIC CIRRHOSIS [None]
  - HEPATIC FUNCTION ABNORMAL [None]
  - HEPATITIS C VIRUS TEST [None]
